FAERS Safety Report 15221843 (Version 2)
Quarter: 2018Q3

REPORT INFORMATION
  Report Type: Spontaneous
  Country: US (occurrence: US)
  Receive Date: 20180731
  Receipt Date: 20180906
  Transmission Date: 20181010
  Serious: Yes (Hospitalization)
  Sender: FDA-Public Use
  Company Number: US-SAREPTA THERAPEUTICS, INC-SRP-000132-2018

PATIENT
  Age: 16 Year
  Sex: Male
  Weight: 39.1 kg

DRUGS (1)
  1. EXONDYS 51 [Suspect]
     Active Substance: ETEPLIRSEN
     Indication: DUCHENNE MUSCULAR DYSTROPHY
     Dosage: 1020 MG, UNK
     Route: 065

REACTIONS (1)
  - Scoliosis [Recovered/Resolved]

NARRATIVE: CASE EVENT DATE: 20180716
